FAERS Safety Report 8213698-7 (Version None)
Quarter: 2012Q1

REPORT INFORMATION
  Report Type: 
  Country: None (occurrence: None)
  Receive Date: 20120315
  Receipt Date: 20120306
  Transmission Date: 20120608
  Serious: Yes (Hospitalization, Disabling, Other)
  Sender: FDA-Public Use
  Company Number: US-ASTRAZENECA-2010SE55771

PATIENT
  Age: 63 Year
  Sex: Female
  Weight: 73.5 kg

DRUGS (14)
  1. NEXIUM [Suspect]
     Indication: GASTRIC ULCER
     Route: 048
     Dates: end: 20040728
  2. NEXIUM [Suspect]
     Route: 048
     Dates: start: 20040729
  3. CRESTOR [Suspect]
     Route: 048
  4. UNSPECIFIED ANTIBIOTIC [Suspect]
  5. TOPROL-XL [Concomitant]
     Route: 048
  6. NEXIUM [Suspect]
     Indication: GASTROOESOPHAGEAL REFLUX DISEASE
     Route: 048
     Dates: end: 20040728
  7. NEXIUM [Suspect]
     Route: 048
     Dates: start: 20040729
  8. BISMUTH SUBSALICYLATE [Concomitant]
  9. BEXTRA [Concomitant]
  10. ASACOL [Concomitant]
  11. NEXIUM [Suspect]
     Route: 048
     Dates: start: 20040729
  12. NEXIUM [Suspect]
     Indication: OESOPHAGEAL ULCER
     Route: 048
     Dates: end: 20040728
  13. CALCIUM CARBONATE [Concomitant]
  14. SINGULAIR [Concomitant]

REACTIONS (14)
  - HERNIA [None]
  - ABDOMINAL HERNIA [None]
  - MALAISE [None]
  - ASTHMA [None]
  - DRUG HYPERSENSITIVITY [None]
  - RASH [None]
  - HYPERSENSITIVITY [None]
  - INCISIONAL HERNIA [None]
  - DEPRESSED LEVEL OF CONSCIOUSNESS [None]
  - STOMATITIS [None]
  - GASTROOESOPHAGEAL REFLUX DISEASE [None]
  - EYE DISORDER [None]
  - DRUG DOSE OMISSION [None]
  - ABDOMINAL PAIN UPPER [None]
